FAERS Safety Report 17505656 (Version 2)
Quarter: 2020Q2

REPORT INFORMATION
  Report Type: Spontaneous
  Country: US (occurrence: US)
  Receive Date: 20200305
  Receipt Date: 20200423
  Transmission Date: 20200713
  Serious: Yes (Other)
  Sender: FDA-Public Use
  Company Number: US-TEVA-2020-US-1193685

PATIENT
  Age: 49 Year
  Sex: Female

DRUGS (4)
  1. IMMUNOGLOBULIN [Concomitant]
     Indication: DERMATOMYOSITIS
     Route: 042
  2. TRASTUZUMAB. [Suspect]
     Active Substance: TRASTUZUMAB
     Indication: INVASIVE DUCTAL BREAST CARCINOMA
     Route: 065
  3. METHOTREXATE. [Suspect]
     Active Substance: METHOTREXATE
     Indication: DERMATOMYOSITIS
     Route: 065
  4. PREDNISONE. [Concomitant]
     Active Substance: PREDNISONE
     Indication: DERMATOMYOSITIS
     Dosage: 60 MILLIGRAM DAILY; HIGH-DOSE
     Route: 065

REACTIONS (2)
  - Dermatomyositis [Recovered/Resolved]
  - Toxicity to various agents [Unknown]
